FAERS Safety Report 5513296-X (Version None)
Quarter: 2007Q4

REPORT INFORMATION
  Report Type: 
  Country: None (occurrence: None)
  Receive Date: 20071112
  Receipt Date: 20071031
  Transmission Date: 20080405
  Serious: Yes (Other)
  Sender: FDA-Public Use
  Company Number: CA-PFIZER INC-2007092554

PATIENT
  Sex: Female

DRUGS (1)
  1. CHAMPIX [Suspect]
     Indication: SMOKING CESSATION THERAPY
     Route: 048

REACTIONS (9)
  - COLITIS [None]
  - CONSTIPATION [None]
  - ENTERITIS [None]
  - FLATULENCE [None]
  - MOUTH ULCERATION [None]
  - NAUSEA [None]
  - RECTAL HAEMORRHAGE [None]
  - RECTAL ULCER [None]
  - VOMITING [None]
